FAERS Safety Report 8954655 (Version 3)
Quarter: 2013Q1

REPORT INFORMATION
  Report Type: Spontaneous
  Country: BR (occurrence: BR)
  Receive Date: 20121207
  Receipt Date: 20130121
  Transmission Date: 20140127
  Serious: Yes (Hospitalization, Other)
  Sender: FDA-Public Use
  Company Number: PHHY2012BR111188

PATIENT
  Age: 86 Year
  Sex: Female
  Weight: 75 kg

DRUGS (15)
  1. EXELON PATCH [Suspect]
     Indication: DEMENTIA ALZHEIMER^S TYPE
     Dosage: 9.5 MG/10 CM2
     Route: 062
  2. CLOMENAC [Concomitant]
     Indication: DEMENTIA ALZHEIMER^S TYPE
     Dosage: 2 DF, DAILY
     Route: 048
  3. ADDERA D3 [Concomitant]
     Indication: BONE DISORDER
     Dosage: 20 DRP, DAILY
     Route: 048
  4. CORDAREX [Concomitant]
     Indication: BLOOD PRESSURE ABNORMAL
     Dosage: 2 DF, DAILY
     Route: 048
  5. BENICAR HCT [Concomitant]
     Indication: BLOOD PRESSURE ABNORMAL
     Dosage: 1 DF, DAILY
     Route: 048
  6. CALCID 600 [Concomitant]
     Indication: BONE DISORDER
     Dosage: 1 DF, DAILY
     Route: 048
  7. VENAFLON [Concomitant]
     Indication: CARDIOVASCULAR DISORDER
     Dosage: 1 DF, DAILY
     Route: 048
  8. GINKO BILOBA [Concomitant]
     Indication: BLOOD PRESSURE ABNORMAL
     Dosage: 1 DF, DAILY
     Route: 048
  9. GINKO BILOBA [Concomitant]
     Indication: CARDIOVASCULAR DISORDER
  10. SIMVASTATIN [Concomitant]
     Indication: BLOOD CHOLESTEROL INCREASED
     Dosage: 1 DF, DAILY
     Route: 048
  11. ATEROGREL [Concomitant]
     Indication: CARDIOVASCULAR DISORDER
     Dosage: 1 DF, DAILY
     Route: 048
  12. ATENOLOL [Concomitant]
     Indication: HYPERTENSION
     Dosage: 1 DF, DAILY
     Route: 048
  13. LORAX [Concomitant]
     Indication: SEDATION
     Dosage: 1 DF, DAILY
     Route: 048
  14. CENTRUM SILVER [Concomitant]
     Indication: SUPPLEMENTATION THERAPY
     Dosage: 1 DF, DAILY
     Route: 048
  15. DECA DURABOLIN [Concomitant]
     Indication: MUSCLE MASS
     Dosage: 1 DF (1 APPLICATION, WEEKLY)
     Route: 030

REACTIONS (3)
  - Pneumonia [Recovered/Resolved]
  - Cough [Recovered/Resolved]
  - Productive cough [Recovered/Resolved]
